FAERS Safety Report 8247491-6 (Version None)
Quarter: 2012Q1

REPORT INFORMATION
  Report Type: 
  Country: None (occurrence: None)
  Receive Date: 20120330
  Receipt Date: 20120320
  Transmission Date: 20120608
  Serious: No
  Sender: FDA-Public Use
  Company Number: US-B.I. PHARMACEUTICALS,INC./RIDGEFIELD-2012-BP-05229BP

PATIENT
  Sex: Female

DRUGS (5)
  1. PULMICORT [Suspect]
     Indication: BRONCHITIS CHRONIC
     Dates: start: 20120314
  2. KLONOPIN [Concomitant]
     Indication: ANXIETY DISORDER
     Route: 048
  3. ATIVAN [Concomitant]
     Indication: ANXIETY DISORDER
     Dosage: 0.5 MG
     Route: 048
  4. SPIRIVA [Suspect]
     Indication: BRONCHITIS CHRONIC
     Dosage: 18 MCG
     Route: 055
     Dates: start: 20120314
  5. NEURONTIN [Concomitant]
     Indication: NEURALGIA
     Route: 048

REACTIONS (3)
  - OROPHARYNGEAL PAIN [None]
  - DYSPHONIA [None]
  - FATIGUE [None]
